FAERS Safety Report 7501506-9 (Version None)
Quarter: 2011Q2

REPORT INFORMATION
  Report Type: 
  Country: None (occurrence: None)
  Receive Date: 20110524
  Receipt Date: 20110513
  Transmission Date: 20111010
  Serious: Yes (Hospitalization, Other)
  Sender: FDA-Public Use
  Company Number: JP-ASTRAZENECA-2011SE30900

PATIENT
  Age: 78 Year
  Sex: Male
  Weight: 60 kg

DRUGS (19)
  1. SYMBICORT [Suspect]
     Route: 055
     Dates: start: 20101020, end: 20101108
  2. SIGMART [Concomitant]
     Indication: ANGINA PECTORIS
     Route: 048
  3. PERSANTIN [Concomitant]
     Indication: ANGINA PECTORIS
     Route: 048
  4. HUSTAZOL [Concomitant]
     Indication: ASTHMA
     Route: 048
  5. LASIX [Concomitant]
     Indication: HYPERTENSION
     Route: 048
  6. ARGAMATE [Concomitant]
     Indication: HYPERKALAEMIA
     Route: 048
     Dates: start: 20101009, end: 20101013
  7. AMLODIPINE [Concomitant]
     Indication: HYPERTENSION
     Route: 048
  8. SALOBEL [Concomitant]
     Indication: HYPERURICAEMIA
     Route: 048
     Dates: start: 20101026
  9. MUCOSOLVAN L [Concomitant]
     Indication: ASTHMA
     Route: 048
  10. MEVALOTIN [Concomitant]
     Indication: HYPERLIPIDAEMIA
     Route: 048
  11. UNIPHYL LA [Concomitant]
     Indication: ASTHMA
     Route: 048
  12. ADALAT [Concomitant]
     Indication: HYPERTENSION
     Route: 048
  13. KAITRON [Concomitant]
     Indication: CARDIAC FAILURE
     Route: 048
  14. SYMBICORT [Suspect]
     Indication: ASTHMA
     Route: 055
     Dates: start: 20101007, end: 20101008
  15. SINGULAIR [Concomitant]
     Indication: ASTHMA
     Route: 048
  16. ALDACTONE [Concomitant]
     Indication: HYPERTENSION
     Route: 048
  17. MEPTIN [Concomitant]
     Indication: ASTHMA
     Route: 055
  18. BISOLVON [Concomitant]
     Indication: ASTHMA
     Route: 055
  19. OZAGREL [Concomitant]
     Indication: ASTHMA
     Route: 048
     Dates: start: 20101015

REACTIONS (3)
  - STOMATITIS [None]
  - BRONCHOPNEUMONIA [None]
  - PNEUMONIA [None]
